FAERS Safety Report 17794127 (Version 1)
Quarter: 2020Q2

REPORT INFORMATION
  Report Type: Spontaneous
  Country: IT (occurrence: IT)
  Receive Date: 20200515
  Receipt Date: 20200515
  Transmission Date: 20200714
  Serious: Yes (Other)
  Sender: FDA-Public Use
  Company Number: IT-MYLANLABS-2020M1047523

PATIENT
  Age: 25 Year
  Sex: Female

DRUGS (12)
  1. METHOTREXATE. [Suspect]
     Active Substance: METHOTREXATE
     Dosage: 4 CYCLES
     Route: 065
     Dates: start: 201704, end: 201708
  2. THIOTEPA. [Suspect]
     Active Substance: THIOTEPA
     Indication: PRIMARY MEDIASTINAL LARGE B-CELL LYMPHOMA
     Dosage: 4 CYCLES 2900 MG IN FORUTH CYCLE
     Route: 065
     Dates: start: 201704, end: 201708
  3. PREDNISONE. [Suspect]
     Active Substance: PREDNISONE
     Indication: PRIMARY MEDIASTINAL LARGE B-CELL LYMPHOMA
     Dosage: 12 CYCLE
     Route: 065
     Dates: start: 201610, end: 201701
  4. BLEOMYCIN [Suspect]
     Active Substance: BLEOMYCIN SULFATE
     Indication: PRIMARY MEDIASTINAL LARGE B-CELL LYMPHOMA
     Dosage: CYCLES 4, 8, 12
     Route: 065
     Dates: start: 201610, end: 201701
  5. VINCRISTINE [Suspect]
     Active Substance: VINCRISTINE
     Indication: PRIMARY MEDIASTINAL LARGE B-CELL LYMPHOMA
     Dosage: ON CYCLES 2, 6, 10 AND CYCLES 4, 8, 12.
     Route: 065
     Dates: start: 201610, end: 201701
  6. METHOTREXATE. [Suspect]
     Active Substance: METHOTREXATE
     Indication: PRIMARY MEDIASTINAL LARGE B-CELL LYMPHOMA
     Dosage: ON CYCLES 2, 6, 10
     Route: 065
     Dates: start: 201610, end: 201701
  7. RITUXIMAB. [Suspect]
     Active Substance: RITUXIMAB
     Indication: PRIMARY MEDIASTINAL LARGE B-CELL LYMPHOMA
     Dosage: RITUXIMAB BOOST DURING FOUR OF THE 12 CYCLES
     Route: 065
     Dates: start: 201610, end: 201701
  8. DOXORUBICIN [Suspect]
     Active Substance: DOXORUBICIN
     Indication: PRIMARY MEDIASTINAL LARGE B-CELL LYMPHOMA
     Dosage: CYCLES 4, 8, 12
     Route: 065
     Dates: start: 201610, end: 201701
  9. DOXORUBICIN [Suspect]
     Active Substance: DOXORUBICIN
     Dosage: ON CYCLES 1, 3, 5, 7, 9, 11
     Dates: start: 201610, end: 201701
  10. CYTARABINE. [Suspect]
     Active Substance: CYTARABINE
     Indication: PRIMARY MEDIASTINAL LARGE B-CELL LYMPHOMA
     Dosage: 4 CYCLE
     Route: 065
     Dates: start: 201704, end: 201708
  11. CYCLOPHOSPHAMIDE. [Suspect]
     Active Substance: CYCLOPHOSPHAMIDE
     Indication: PRIMARY MEDIASTINAL LARGE B-CELL LYMPHOMA
     Dosage: ON CYCLES 1, 3, 5, 7, 9, 11
     Route: 065
     Dates: start: 201610, end: 201701
  12. RITUXIMAB. [Suspect]
     Active Substance: RITUXIMAB
     Dosage: 4 CYCLES
     Route: 065
     Dates: start: 201704, end: 201708

REACTIONS (9)
  - Pharyngeal inflammation [Unknown]
  - Anaemia [Unknown]
  - Dry eye [Unknown]
  - Thrombocytopenia [Unknown]
  - Stomatitis [Unknown]
  - Neutropenia [Recovered/Resolved]
  - Herpes simplex reactivation [Unknown]
  - Pyrexia [Unknown]
  - Fungal infection [Unknown]
